FAERS Safety Report 19930557 (Version 1)
Quarter: 2021Q4

REPORT INFORMATION
  Report Type: Spontaneous
  Country: SA (occurrence: SA)
  Receive Date: 20211008
  Receipt Date: 20211008
  Transmission Date: 20220303
  Serious: Yes (Death, Other)
  Sender: FDA-Public Use
  Company Number: SA-BIOVITRUM-2021SA8872

PATIENT
  Age: 6 Month
  Sex: Female

DRUGS (2)
  1. GAMIFANT [Suspect]
     Active Substance: EMAPALUMAB-LZSG
     Indication: Familial haemophagocytic lymphohistiocytosis
     Route: 042
     Dates: start: 20210904, end: 20211001
  2. DEXAMETHASONE [Concomitant]
     Active Substance: DEXAMETHASONE

REACTIONS (2)
  - Cytomegalovirus infection [Fatal]
  - Pulmonary fibrosis [Fatal]
